FAERS Safety Report 5848900-X (Version None)
Quarter: 2008Q3

REPORT INFORMATION
  Report Type: 
  Country: None (occurrence: None)
  Receive Date: 20080818
  Receipt Date: 20080807
  Transmission Date: 20090109
  Serious: Yes (Hospitalization)
  Sender: FDA-Public Use
  Company Number: US-PFIZER INC-2008066573

PATIENT
  Sex: Female

DRUGS (8)
  1. PREDNISONE TAB [Suspect]
     Dosage: DAILY DOSE:2.5MG-TEXT:2.5 MG-FREQ:ONCE DAILY
     Route: 048
  2. CELECOXIB [Suspect]
     Dates: start: 20030709, end: 20070828
  3. ETANERCEPT [Suspect]
     Indication: RHEUMATOID ARTHRITIS
     Dosage: DAILY DOSE:25MG-FREQ:FREQUENCY:2 IN 1 WEEKS
     Route: 058
     Dates: start: 20030513, end: 20070715
  4. ADALIMUMAB [Suspect]
     Indication: RHEUMATOID ARTHRITIS
     Dosage: DAILY DOSE:40MG-FREQ:FREQUENCY: 1 IN 1 WEEKS
     Route: 058
     Dates: start: 20050928, end: 20051209
  5. ABATACEPT [Suspect]
     Dosage: DAILY DOSE:750MG
     Route: 042
     Dates: start: 20070724, end: 20070820
  6. DILTIAZEM HYDROCHLORIDE [Concomitant]
  7. HYDROXYCHLOROQUINE [Concomitant]
  8. FLUTICASONE PROPIONATE [Concomitant]

REACTIONS (3)
  - DIVERTICULITIS [None]
  - MALNUTRITION [None]
  - RED BLOOD CELL COUNT DECREASED [None]
